FAERS Safety Report 18998188 (Version 1)
Quarter: 2021Q1

REPORT INFORMATION
  Report Type: Spontaneous
  Country: DE (occurrence: DE)
  Receive Date: 20210311
  Receipt Date: 20210311
  Transmission Date: 20210420
  Serious: Yes (Hospitalization)
  Sender: FDA-Public Use
  Company Number: DE-PFIZER INC-2021220528

PATIENT
  Age: 85 Year
  Sex: Male
  Weight: 75 kg

DRUGS (14)
  1. ENALAPRIL [Suspect]
     Active Substance: ENALAPRIL
     Dosage: 10 MG, (2?0?2?0)
     Route: 048
  2. FUROSEMIDE. [Suspect]
     Active Substance: FUROSEMIDE
     Dosage: 500 MG, (0.5?0?0?0)
     Route: 048
  3. DOXAZOSIN MESILATE [Suspect]
     Active Substance: DOXAZOSIN MESYLATE
     Dosage: 4 MG, 1X/DAY (1?0?0?0)
     Route: 048
  4. METAMIZOLE [Suspect]
     Active Substance: METAMIZOLE
     Dosage: 500 MG (1?1?1?1)
     Route: 048
  5. SIMVASTATIN. [Concomitant]
     Active Substance: SIMVASTATIN
     Dosage: 20 MG, 1X/DAY (0?0?0?1)
     Route: 048
  6. MOXONIDIN [Suspect]
     Active Substance: MOXONIDINE
     Dosage: 0.2 MG, (1?0?1?0)
     Route: 048
  7. DIGITOXIN [Suspect]
     Active Substance: DIGITOXIN
     Dosage: 0.5 MG, 1X/DAY (1?0?0?0)
     Route: 048
  8. APIXABAN [Concomitant]
     Active Substance: APIXABAN
     Dosage: 2.5 MG (1?0?1?0)
     Route: 048
  9. ACTRAPHANE [Concomitant]
     Active Substance: INSULIN HUMAN
     Dosage: 90/210 IE (20?0?10?0)
     Route: 030
  10. AMLODIPINE BESILATE [Suspect]
     Active Substance: AMLODIPINE BESYLATE
     Dosage: 10 MG, 1X/DAY (1?0?0?0)
     Route: 048
  11. TAMSULOSIN [Concomitant]
     Active Substance: TAMSULOSIN
     Dosage: 0.4 MG, 1X/DAY (0?1?0?0)
     Route: 048
  12. NALOXONE HYDROCHLORIDE/TILIDINE HYDROCHLORIDE [Concomitant]
     Active Substance: NALOXONE HYDROCHLORIDE\TILIDINE HYDROCHLORIDE
     Dosage: 4/50 MG, (1?0?1?0)
     Route: 048
  13. MIRTAZAPIN [Concomitant]
     Active Substance: MIRTAZAPINE
     Dosage: 15 MG, 1X/DAY (0?0?0?1)
     Route: 048
  14. ALLOPURINOL. [Concomitant]
     Active Substance: ALLOPURINOL
     Dosage: 100 MG, 1X/DAY (1?0?0?0)
     Route: 048

REACTIONS (2)
  - Pain in extremity [Unknown]
  - Product monitoring error [Unknown]

NARRATIVE: CASE EVENT DATE: 20190708
